FAERS Safety Report 6286770-9 (Version None)
Quarter: 2009Q3

REPORT INFORMATION
  Report Type: 
  Country: None (occurrence: None)
  Receive Date: 20090728
  Receipt Date: 20090722
  Transmission Date: 20100115
  Serious: Yes (Hospitalization)
  Sender: FDA-Public Use
  Company Number: JP-PFIZER INC-2009194770

PATIENT
  Age: 76 Year

DRUGS (6)
  1. SUNITINIB MALATE [Suspect]
     Indication: RENAL CELL CARCINOMA
     Dosage: 37.5 MG, 1X/DAY
     Route: 048
     Dates: start: 20081010
  2. ADALAT [Concomitant]
     Dosage: UNK
     Route: 048
     Dates: start: 20081105
  3. PETROLATUM SALICYLICUM [Concomitant]
     Dosage: UNK
     Route: 062
     Dates: start: 20081107, end: 20090127
  4. NERISONA [Concomitant]
     Dosage: UNK
     Route: 062
     Dates: start: 20081107, end: 20090127
  5. PURSENNID [Concomitant]
     Dosage: UNK
     Route: 048
     Dates: start: 20081102
  6. MAG-LAX [Concomitant]
     Dosage: UNK
     Route: 048
     Dates: start: 20081102, end: 20090122

REACTIONS (4)
  - ANAEMIA [None]
  - GENERALISED OEDEMA [None]
  - RENAL IMPAIRMENT [None]
  - STOMATITIS [None]
